FAERS Safety Report 9190481 (Version 1)
Quarter: 2013Q1

REPORT INFORMATION
  Report Type: Spontaneous
  Country: US (occurrence: US)
  Receive Date: 20130326
  Receipt Date: 20130326
  Transmission Date: 20140127
  Serious: Yes (Death, Hospitalization, Other)
  Sender: FDA-Public Use
  Company Number: US-BAYER-2013-034736

PATIENT
  Sex: Male

DRUGS (8)
  1. XARELTO [Suspect]
     Indication: ATRIAL FIBRILLATION
     Dosage: 15 MG, UNK
     Route: 048
     Dates: start: 20130215
  2. XARELTO [Interacting]
     Indication: CEREBROVASCULAR ACCIDENT PROPHYLAXIS
  3. ACETYLSALICYLIC ACID({=100 MG) [Interacting]
  4. LEXAPRO [Concomitant]
  5. LOPRESSOR [Concomitant]
  6. LOSARTAN [Concomitant]
  7. TRAMADOL [Concomitant]
  8. HALDOL [Concomitant]

REACTIONS (4)
  - Haemorrhage [Fatal]
  - International normalised ratio increased [Unknown]
  - Cerebral haemorrhage [Unknown]
  - Product quality issue [None]
